FAERS Safety Report 5017219-1 (Version None)
Quarter: 2006Q2

REPORT INFORMATION
  Report Type: 
  Country: None (occurrence: None)
  Receive Date: 20060602
  Receipt Date: 20020924
  Transmission Date: 20061013
  Serious: Yes (Hospitalization)
  Sender: FDA-Public Use
  Company Number: JP-ABBOTT-02P-087-0201424-00

PATIENT
  Sex: Male

DRUGS (11)
  1. KALETRA [Suspect]
     Indication: HIV INFECTION
     Route: 048
     Dates: start: 20031202, end: 20031203
  2. NORVIR [Suspect]
     Indication: HIV INFECTION
     Route: 048
     Dates: start: 20010401, end: 20031202
  3. NORVIR [Suspect]
     Route: 048
     Dates: start: 20040615
  4. ZIDOVUDINE [Suspect]
     Indication: HIV INFECTION
     Route: 048
     Dates: start: 20010401, end: 20031203
  5. LAMIVUDINE [Suspect]
     Indication: HIV INFECTION
     Route: 048
     Dates: start: 20010401, end: 20031203
  6. LAMIVUDINE [Suspect]
     Route: 048
     Dates: start: 20040420
  7. INDINAVIR [Suspect]
     Indication: HIV INFECTION
     Route: 048
     Dates: start: 20010401, end: 20031202
  8. ATAZANAVIR [Suspect]
     Indication: HIV INFECTION
     Route: 048
     Dates: start: 20040420, end: 20040614
  9. ATAZANAVIR [Suspect]
     Route: 048
     Dates: start: 20040615
  10. BACTRIM [Concomitant]
     Indication: ANTIBIOTIC PROPHYLAXIS
     Route: 048
     Dates: start: 20040203, end: 20040615
  11. ABACAVIR [Concomitant]
     Indication: HIV INFECTION
     Route: 048
     Dates: start: 20040420

REACTIONS (8)
  - BACK PAIN [None]
  - BLOOD BILIRUBIN INCREASED [None]
  - BLOOD URIC ACID INCREASED [None]
  - GALLBLADDER DISORDER [None]
  - HAEMATURIA [None]
  - HYPERCHOLESTEROLAEMIA [None]
  - HYPERLIPIDAEMIA [None]
  - RENAL FAILURE ACUTE [None]
